FAERS Safety Report 5679541-5 (Version None)
Quarter: 2008Q1

REPORT INFORMATION
  Report Type: 
  Country: None (occurrence: None)
  Receive Date: 20080325
  Receipt Date: 20080313
  Transmission Date: 20080703
  Serious: Yes (Hospitalization)
  Sender: FDA-Public Use
  Company Number: NL-PFIZER INC-2008024246

PATIENT
  Sex: Male

DRUGS (5)
  1. LYRICA [Suspect]
     Indication: NEURALGIA
     Route: 048
  2. METFORMIN [Concomitant]
  3. AMARYL [Concomitant]
  4. TRAMADOL HCL [Concomitant]
  5. ENALAPRIL MALEATE [Concomitant]

REACTIONS (14)
  - ANOREXIA [None]
  - BACK PAIN [None]
  - DECREASED INTEREST [None]
  - DEPRESSION [None]
  - HEADACHE [None]
  - HYPERHIDROSIS [None]
  - INSOMNIA [None]
  - LISTLESS [None]
  - MALAISE [None]
  - MUSCLE TWITCHING [None]
  - NEGLECT OF PERSONAL APPEARANCE [None]
  - RESPIRATORY TRACT INFECTION [None]
  - SENSORY DISTURBANCE [None]
  - TREMOR [None]
